FAERS Safety Report 9277467 (Version 1)
Quarter: 2013Q2

REPORT INFORMATION
  Report Type: Spontaneous
  Country: FR (occurrence: FR)
  Receive Date: 20130508
  Receipt Date: 20130508
  Transmission Date: 20140414
  Serious: Yes (Other)
  Sender: FDA-Public Use
  Company Number: FR-BIOGENIDEC-2013BI040649

PATIENT
  Age: 52 Year
  Sex: Male

DRUGS (5)
  1. TYSABRI [Suspect]
     Indication: MULTIPLE SCLEROSIS
     Route: 042
     Dates: start: 20111129
  2. ZYPREXA [Concomitant]
  3. SERTRALINE [Concomitant]
  4. IMOVANE [Concomitant]
  5. ATARAX [Concomitant]

REACTIONS (1)
  - Lip and/or oral cavity cancer recurrent [Not Recovered/Not Resolved]
